FAERS Safety Report 23647118 (Version 3)
Quarter: 2025Q3

REPORT INFORMATION
  Report Type: Spontaneous
  Country: JP (occurrence: JP)
  Receive Date: 20240319
  Receipt Date: 20250709
  Transmission Date: 20251021
  Serious: Yes (Hospitalization, Other)
  Sender: ROCHE
  Company Number: JP-CHUGAI-2024008055

PATIENT
  Age: 83 Year
  Sex: Male
  Weight: 63.0 kg

DRUGS (10)
  1. AVASTIN [Suspect]
     Active Substance: BEVACIZUMAB
     Indication: Hepatocellular carcinoma
     Dosage: 800 MILLIGRAM, ONCE/3WEEKS
     Route: 065
     Dates: start: 20231220, end: 20240131
  2. AVASTIN [Suspect]
     Active Substance: BEVACIZUMAB
     Dosage: 600 MILLIGRAM, ONCE/3WEEKS
     Route: 065
     Dates: start: 20240221, end: 20240221
  3. TECENTRIQ [Suspect]
     Active Substance: ATEZOLIZUMAB
     Indication: Hepatocellular carcinoma
     Dosage: 1200 MILLIGRAM, ONCE/3WEEKS
     Route: 065
     Dates: start: 20231220, end: 20240221
  4. NALFURAFINE HYDROCHLORIDE [Concomitant]
     Active Substance: NALFURAFINE HYDROCHLORIDE
     Dates: start: 20240219
  5. AMLODIPINE BESYLATE [Concomitant]
     Active Substance: AMLODIPINE BESYLATE
  6. BISOPROLOL FUMARATE [Concomitant]
     Active Substance: BISOPROLOL FUMARATE
  7. LANSOPRAZOLE [Concomitant]
     Active Substance: LANSOPRAZOLE
  8. NAFTOPIDIL [Concomitant]
     Active Substance: NAFTOPIDIL
  9. MIRABEGRON [Concomitant]
     Active Substance: MIRABEGRON
  10. EPINASTINE HYDROCHLORIDE [Concomitant]
     Active Substance: EPINASTINE HYDROCHLORIDE

REACTIONS (3)
  - Acute cholecystitis necrotic [Recovered/Resolved]
  - Impaired healing [Unknown]
  - Gallbladder rupture [Recovered/Resolved]

NARRATIVE: CASE EVENT DATE: 20240101
